FAERS Safety Report 12338295 (Version 1)
Quarter: 2016Q2

REPORT INFORMATION
  Report Type: Report from Study
  Country: US (occurrence: US)
  Receive Date: 20160505
  Receipt Date: 20160505
  Transmission Date: 20160815
  Serious: Yes (Hospitalization)
  Sender: FDA-Public Use
  Company Number: US-EISAI MEDICAL RESEARCH-EC-2016-016526

PATIENT
  Age: 73 Year
  Sex: Male
  Weight: 71 kg

DRUGS (13)
  1. FOLIC ACID. [Concomitant]
     Active Substance: FOLIC ACID
  2. POLYETHYLENE GLYCOL [Concomitant]
     Active Substance: POLYETHYLENE GLYCOLS
  3. TRAMADOL. [Concomitant]
     Active Substance: TRAMADOL
  4. GEMCITABINE [Suspect]
     Active Substance: GEMCITABINE\GEMCITABINE HYDROCHLORIDE
     Indication: BLADDER TRANSITIONAL CELL CARCINOMA
     Route: 041
     Dates: start: 20160309, end: 20160316
  5. SENNA [Concomitant]
     Active Substance: SENNA LEAF\SENNOSIDES\SENNOSIDES A AND B
  6. NITROGLYCERIN. [Concomitant]
     Active Substance: NITROGLYCERIN
  7. OMEPRAZOLE. [Concomitant]
     Active Substance: OMEPRAZOLE
  8. ERIBULIN [Suspect]
     Active Substance: ERIBULIN
     Indication: BLADDER TRANSITIONAL CELL CARCINOMA
     Route: 041
     Dates: start: 20160309, end: 20160316
  9. VITAMIN B12 [Concomitant]
     Active Substance: CYANOCOBALAMIN
  10. CARVEDILOL. [Concomitant]
     Active Substance: CARVEDILOL
  11. FENOFIBRATE. [Concomitant]
     Active Substance: FENOFIBRATE
  12. LEFLUMOMIDE [Concomitant]
  13. DOCUSATE [Concomitant]
     Active Substance: DOCUSATE

REACTIONS (1)
  - Angina pectoris [Recovered/Resolved]

NARRATIVE: CASE EVENT DATE: 20160402
